FAERS Safety Report 7611995-7 (Version None)
Quarter: 2011Q3

REPORT INFORMATION
  Report Type: 
  Country: None (occurrence: None)
  Receive Date: 20110715
  Receipt Date: 20110708
  Transmission Date: 20111222
  Serious: Yes (Hospitalization, Other)
  Sender: FDA-Public Use
  Company Number: FR-ELI_LILLY_AND_COMPANY-FR201107002258

PATIENT
  Sex: Female

DRUGS (1)
  1. GEMZAR [Suspect]
     Indication: PANCREATIC CARCINOMA METASTATIC
     Dosage: UNK
     Route: 042
     Dates: start: 20110325, end: 20110603

REACTIONS (8)
  - PAIN [None]
  - PARAESTHESIA [None]
  - ERYTHEMA [None]
  - RASH [None]
  - ERYSIPELAS [None]
  - OEDEMA PERIPHERAL [None]
  - COUGH [None]
  - SKIN EXFOLIATION [None]
